FAERS Safety Report 24072445 (Version 1)
Quarter: 2024Q3

REPORT INFORMATION
  Report Type: Spontaneous
  Country: GB (occurrence: GB)
  Receive Date: 20240710
  Receipt Date: 20240710
  Transmission Date: 20241017
  Serious: Yes (Disabling, Other)
  Sender: TEVA
  Company Number: None

PATIENT
  Age: 47 Year
  Sex: Female
  Weight: 118 kg

DRUGS (15)
  1. OLANZAPINE [Suspect]
     Active Substance: OLANZAPINE
     Indication: Dissociative identity disorder
     Dosage: 10MG EVENING REDUCED TO 7.5MG THEN 5MG THEN 2.5MG, TEVA UK OLANZAPINE
     Route: 065
     Dates: start: 20130801, end: 20231016
  2. OLANZAPINE [Suspect]
     Active Substance: OLANZAPINE
     Indication: Dissociative identity disorder
     Dosage: 10MG IN THE EVENING AND 10MG DAILY PRN REDUCED TO 7.5MG EVENING THEN 5MG EVENING THEN 2.5MG EVENI...
     Route: 065
     Dates: start: 20130801, end: 20231016
  3. ALUMINUM HYDROXIDE\MAGNESIUM HYDROXIDE [Concomitant]
     Active Substance: ALUMINUM HYDROXIDE\MAGNESIUM HYDROXIDE
     Indication: Gastrooesophageal reflux disease
  4. METFORMIN [Concomitant]
     Active Substance: METFORMIN HYDROCHLORIDE
     Indication: Prophylaxis
  5. ESOMEPRAZOLE [Concomitant]
     Active Substance: ESOMEPRAZOLE
     Indication: Gastrooesophageal reflux disease
     Dosage: TEVA UK ESOMEPRAZOLE GASTRO-RESISTANT
  6. INDOMETHACIN [Concomitant]
     Active Substance: INDOMETHACIN
     Indication: Osteoarthritis
  7. VENLAFAXINE [Concomitant]
     Active Substance: VENLAFAXINE HYDROCHLORIDE
     Indication: Dissociative identity disorder
  8. AZELAIC ACID [Concomitant]
     Active Substance: AZELAIC ACID
     Indication: Rosacea
  9. CYCLIZINE [Concomitant]
     Active Substance: CYCLIZINE
     Indication: Nausea
  10. DIHYDROCODEINE [Concomitant]
     Active Substance: DIHYDROCODEINE
     Indication: Arthralgia
  11. DESOGESTREL [Concomitant]
     Active Substance: DESOGESTREL
     Indication: Dysmenorrhoea
  12. LORAZEPAM [Concomitant]
     Active Substance: LORAZEPAM
     Indication: Agitation
  13. NITRAZEPAM [Concomitant]
     Active Substance: NITRAZEPAM
     Indication: Insomnia
  14. CYANOCOBALAMIN [Concomitant]
     Active Substance: CYANOCOBALAMIN
     Indication: Anaemia vitamin B12 deficiency
  15. FERROUS SULFATE [Concomitant]
     Active Substance: FERROUS SULFATE
     Indication: Anaemia
     Dosage: TEVA UK FERROUS SULPHATE

REACTIONS (10)
  - Carbohydrate tolerance decreased [Not Recovered/Not Resolved]
  - Medication error [Unknown]
  - Withdrawal syndrome [Recovered/Resolved with Sequelae]
  - Terminal insomnia [Not Recovered/Not Resolved]
  - Weight decreased [Not Recovered/Not Resolved]
  - Anxiety [Recovered/Resolved]
  - Insomnia [Recovered/Resolved with Sequelae]
  - Dizziness [Recovering/Resolving]
  - Nausea [Recovered/Resolved with Sequelae]
  - Vomiting [Recovering/Resolving]

NARRATIVE: CASE EVENT DATE: 20231016
